FAERS Safety Report 4377402-5 (Version None)
Quarter: 2004Q2

REPORT INFORMATION
  Report Type: 
  Country: None (occurrence: None)
  Receive Date: 20040609
  Receipt Date: 20040526
  Transmission Date: 20050107
  Serious: Yes (Other)
  Sender: FDA-Public Use
  Company Number: EWC040539431

PATIENT
  Age: 55 Year
  Sex: Female
  Weight: 57 kg

DRUGS (4)
  1. FLUOXETINE [Suspect]
     Indication: DEPRESSION
     Dosage: 20 MG DAY
     Dates: start: 20040114, end: 20040121
  2. SURMONTIL [Concomitant]
  3. FLUANXOL (FLUPENTIXOL DIHYDROCHLORIDE) [Concomitant]
  4. CIPRALEX (ESCITALOPRAM) [Concomitant]

REACTIONS (6)
  - ACTIVITIES OF DAILY LIVING IMPAIRED [None]
  - DRUG LEVEL DECREASED [None]
  - DYSGRAPHIA [None]
  - EXTRAPYRAMIDAL DISORDER [None]
  - MENTAL DISORDER [None]
  - REFUSAL OF TREATMENT BY PATIENT [None]
